FAERS Safety Report 25169830 (Version 1)
Quarter: 2025Q2

REPORT INFORMATION
  Report Type: Spontaneous
  Country: US (occurrence: US)
  Receive Date: 20250407
  Receipt Date: 20250407
  Transmission Date: 20250717
  Serious: Yes (Hospitalization)
  Sender: VERTEX
  Company Number: US-VERTEX PHARMACEUTICALS-2022-015039

PATIENT
  Sex: Male
  Weight: 75 kg

DRUGS (1)
  1. TRIKAFTA [Suspect]
     Active Substance: ELEXACAFTOR\IVACAFTOR\TEZACAFTOR
     Indication: Cystic fibrosis
     Dosage: TWO ORANGE TABS IN AM AND ONE BLUE TAB IN PM
     Route: 048
     Dates: start: 20200125

REACTIONS (7)
  - Rash papular [Unknown]
  - Diarrhoea [Unknown]
  - Rash [Not Recovered/Not Resolved]
  - Rash pruritic [Not Recovered/Not Resolved]
  - Hospitalisation [Unknown]
  - Blood glucose increased [Unknown]
  - Diabetes mellitus [Not Recovered/Not Resolved]

NARRATIVE: CASE EVENT DATE: 20220101
